FAERS Safety Report 26166604 (Version 2)
Quarter: 2025Q4

REPORT INFORMATION
  Report Type: Report from Study
  Country: EU (occurrence: EU)
  Receive Date: 20251217
  Receipt Date: 20251229
  Transmission Date: 20260118
  Serious: Yes (Death, Life-Threatening, Hospitalization, Other)
  Sender: ALEXION PHARMACEUTICALS
  Company Number: EU-ABBVIE-6572905

PATIENT

DRUGS (13)
  1. ACALABRUTINIB [Suspect]
     Active Substance: ACALABRUTINIB
     Indication: Chronic lymphocytic leukaemia
     Dosage: UNK
     Route: 065
  2. ACALABRUTINIB [Suspect]
     Active Substance: ACALABRUTINIB
     Indication: Acute myeloid leukaemia
  3. IBRUTINIB [Suspect]
     Active Substance: IBRUTINIB
     Indication: Chronic lymphocytic leukaemia
     Dosage: UNK
     Route: 061
  4. IBRUTINIB [Suspect]
     Active Substance: IBRUTINIB
     Indication: Acute myeloid leukaemia
  5. OBINUTUZUMAB [Suspect]
     Active Substance: OBINUTUZUMAB
     Indication: Chronic lymphocytic leukaemia
     Dosage: UNK
     Route: 065
  6. OBINUTUZUMAB [Suspect]
     Active Substance: OBINUTUZUMAB
     Indication: Acute myeloid leukaemia
  7. AZACITIDINE [Suspect]
     Active Substance: AZACITIDINE
     Indication: Chronic lymphocytic leukaemia
     Dosage: UNK
     Route: 065
  8. AZACITIDINE [Suspect]
     Active Substance: AZACITIDINE
     Indication: Acute myeloid leukaemia
  9. VENETOCLAX [Suspect]
     Active Substance: VENETOCLAX
     Indication: Chronic lymphocytic leukaemia
     Dosage: UNK
     Route: 061
  10. VENETOCLAX [Suspect]
     Active Substance: VENETOCLAX
     Indication: Acute myeloid leukaemia
  11. VENETOCLAX [Suspect]
     Active Substance: VENETOCLAX
     Indication: Lymphoma
  12. VENETOCLAX [Suspect]
     Active Substance: VENETOCLAX
     Indication: Plasma cell myeloma
  13. VENETOCLAX [Suspect]
     Active Substance: VENETOCLAX
     Indication: Myelofibrosis

REACTIONS (10)
  - Toxicity to various agents [Fatal]
  - Infection [Fatal]
  - Therapeutic product effect incomplete [Fatal]
  - Acute myeloid leukaemia recurrent [Fatal]
  - Atrial fibrillation [Unknown]
  - Tumour lysis syndrome [Unknown]
  - Hypertension [Unknown]
  - Headache [Unknown]
  - Drug ineffective [Unknown]
  - Drug resistance [Unknown]
